FAERS Safety Report 9733695 (Version 1)
Quarter: 2013Q4

REPORT INFORMATION
  Report Type: Report from Study
  Country: US (occurrence: US)
  Receive Date: 20131205
  Receipt Date: 20131205
  Transmission Date: 20140711
  Serious: Yes (Other)
  Sender: FDA-Public Use
  Company Number: US-ABBVIE-13P-163-1174341-00

PATIENT
  Age: 64 Year
  Sex: Female
  Weight: 70.37 kg

DRUGS (7)
  1. HUMIRA [Suspect]
     Indication: PSORIASIS
     Dates: start: 201209, end: 201303
  2. HUMIRA [Suspect]
     Indication: PSORIATIC ARTHROPATHY
  3. METFORMIN [Concomitant]
     Indication: DIABETES MELLITUS
  4. GLIPERIDE [Concomitant]
     Indication: DIABETES MELLITUS
  5. AMBIEN [Concomitant]
     Indication: INSOMNIA
  6. FLUOXETINE [Concomitant]
     Indication: NERVOUSNESS
  7. SOMA [Concomitant]
     Indication: MUSCLE RELAXANT THERAPY

REACTIONS (6)
  - Retinopathy [Not Recovered/Not Resolved]
  - Visual acuity reduced [Not Recovered/Not Resolved]
  - Visual impairment [Not Recovered/Not Resolved]
  - Visual impairment [Not Recovered/Not Resolved]
  - Eye infection [Not Recovered/Not Resolved]
  - Pain in extremity [Not Recovered/Not Resolved]
